FAERS Safety Report 21835628 (Version 1)
Quarter: 2023Q1

REPORT INFORMATION
  Report Type: Spontaneous
  Country: US (occurrence: US)
  Receive Date: 20230109
  Receipt Date: 20230109
  Transmission Date: 20230418
  Serious: Yes (Hospitalization, Other)
  Sender: FDA-Public Use
  Company Number: US-LUPIN PHARMACEUTICALS INC.-2022-15030

PATIENT
  Age: 34 Year
  Sex: Female

DRUGS (3)
  1. METHYLERGONOVINE [Suspect]
     Active Substance: METHYLERGONOVINE
     Indication: Postpartum haemorrhage
     Dosage: UNK
     Route: 065
  2. TRANEXAMIC ACID [Concomitant]
     Active Substance: TRANEXAMIC ACID
     Indication: Postpartum haemorrhage
     Dosage: UNK
     Route: 065
  3. CARBOPROST [Concomitant]
     Active Substance: CARBOPROST
     Indication: Postpartum haemorrhage
     Dosage: UNK
     Route: 065

REACTIONS (12)
  - Posterior reversible encephalopathy syndrome [Recovered/Resolved]
  - Cerebral vasoconstriction [Recovered/Resolved]
  - Seizure [Recovered/Resolved]
  - Hypoxia [Recovered/Resolved]
  - Pulseless electrical activity [Recovered/Resolved]
  - Haemorrhage [Recovered/Resolved]
  - Respiratory arrest [Recovered/Resolved]
  - Cardiac arrest [Recovered/Resolved]
  - Myocardial stunning [Recovered/Resolved]
  - Cardiogenic shock [Recovered/Resolved]
  - Hypertension [Recovered/Resolved]
  - Tachycardia [Recovered/Resolved]
